FAERS Safety Report 4513366-9 (Version None)
Quarter: 2004Q4

REPORT INFORMATION
  Report Type: 
  Country: None (occurrence: None)
  Receive Date: 20041130
  Receipt Date: 20040817
  Transmission Date: 20050328
  Serious: No
  Sender: FDA-Public Use
  Company Number: US-BRISTOL-MYERS SQUIBB COMPANY-12682167

PATIENT
  Age: 65 Year
  Sex: Female
  Weight: 72 kg

DRUGS (12)
  1. ERBITUX [Suspect]
     Indication: COLON CANCER METASTATIC
     Dosage: 04AUG04: 716 MG; 11AUG04: 447 MG
     Route: 042
     Dates: start: 20040801, end: 20040801
  2. DECADRON [Concomitant]
     Indication: PREMEDICATION
     Route: 042
     Dates: start: 20040801, end: 20040801
  3. BENADRYL [Concomitant]
     Indication: PREMEDICATION
     Route: 042
     Dates: start: 20040801, end: 20040801
  4. ANZEMET [Concomitant]
     Indication: PREMEDICATION
     Route: 042
     Dates: start: 20040801, end: 20040801
  5. COUMADIN [Concomitant]
     Indication: THROMBOSIS
     Dates: start: 20040501
  6. VITAMIN B6 [Concomitant]
  7. SYNTHROID [Concomitant]
  8. MULTI-VITAMIN [Concomitant]
  9. CALCIUM [Concomitant]
  10. AMBIEN [Concomitant]
  11. IMODIUM [Concomitant]
  12. COMPAZINE [Concomitant]

REACTIONS (1)
  - DERMATITIS ACNEIFORM [None]
